FAERS Safety Report 7948615-8 (Version None)
Quarter: 2011Q4

REPORT INFORMATION
  Report Type: 
  Country: None (occurrence: None)
  Receive Date: 20111125
  Receipt Date: 20111111
  Transmission Date: 20120403
  Serious: Yes (Other)
  Sender: FDA-Public Use
  Company Number: US-ACCORD-011186

PATIENT
  Age: 15 Month
  Sex: Male

DRUGS (6)
  1. VALGANCICLOVIR(VANGANCICLOVIR) [Concomitant]
  2. BASILIXIMAB(BASILIXIMAB) [Concomitant]
  3. GANCICLOVIR [Concomitant]
  4. TACROLIMUS [Suspect]
     Indication: IMMUNOSUPPRESSION
  5. PREDNISONE TAB [Suspect]
     Indication: IMMUNOSUPPRESSION
  6. METHYLPREDNISOLONE [Concomitant]

REACTIONS (5)
  - HUMAN HERPESVIRUS 8 INFECTION [None]
  - CASTLEMAN'S DISEASE [None]
  - HYPERURICAEMIA [None]
  - GROWTH RETARDATION [None]
  - LIVER TRANSPLANT REJECTION [None]
